FAERS Safety Report 13568800 (Version 1)
Quarter: 2017Q2

REPORT INFORMATION
  Report Type: Spontaneous
  Country: CH (occurrence: CH)
  Receive Date: 20170522
  Receipt Date: 20170522
  Transmission Date: 20170830
  Serious: Yes (Other)
  Sender: FDA-Public Use
  Company Number: CH-BAYER-2017-094721

PATIENT
  Sex: Female

DRUGS (2)
  1. OCTREOTIDE. [Suspect]
     Active Substance: OCTREOTIDE
     Indication: MENINGIOMA
     Dates: start: 2011
  2. NEXAVAR [Suspect]
     Active Substance: SORAFENIB
     Indication: MENINGIOMA
     Dosage: UNK
     Dates: start: 2011

REACTIONS (3)
  - Encephalitis allergic [Unknown]
  - Hepatic enzyme increased [None]
  - Drug ineffective [None]

NARRATIVE: CASE EVENT DATE: 2011
